FAERS Safety Report 20357367 (Version 3)
Quarter: 2022Q1

REPORT INFORMATION
  Report Type: Spontaneous
  Country: FR (occurrence: FR)
  Receive Date: 20220120
  Receipt Date: 20220204
  Transmission Date: 20220424
  Serious: Yes (Disabling, Other)
  Sender: FDA-Public Use
  Company Number: FR-PFM-2021-11742

PATIENT
  Age: 58 Year
  Sex: Male
  Weight: 81 kg

DRUGS (6)
  1. BRAFTOVI [Suspect]
     Active Substance: ENCORAFENIB
     Indication: Colorectal cancer
     Dosage: 300 MG/DAY IN THE MORNING
     Route: 048
     Dates: start: 20211121
  2. ERBITUX [Suspect]
     Active Substance: CETUXIMAB
     Indication: Colorectal cancer
     Dosage: EVERY 14 DAYS
     Route: 065
     Dates: start: 20211122
  3. ERBITUX [Suspect]
     Active Substance: CETUXIMAB
     Dosage: EVERY 14 DAYS
     Route: 065
     Dates: start: 20220117
  4. LERCANIDIPINE [Concomitant]
     Active Substance: LERCANIDIPINE
     Dosage: 10 MG PER DAY
     Route: 065
  5. INNOHEP [Concomitant]
     Active Substance: TINZAPARIN SODIUM
     Dosage: 16000 IU, THE EVENING
     Route: 065
  6. RACECADOTRIL [Concomitant]
     Active Substance: RACECADOTRIL
     Dosage: UNK
     Route: 065

REACTIONS (3)
  - Peripheral motor neuropathy [Recovering/Resolving]
  - Motor dysfunction [Recovering/Resolving]
  - Dizziness [Recovering/Resolving]

NARRATIVE: CASE EVENT DATE: 20211125
